FAERS Safety Report 14351859 (Version 1)
Quarter: 2018Q1

REPORT INFORMATION
  Report Type: Report from Study
  Country: DE (occurrence: DE)
  Receive Date: 20180104
  Receipt Date: 20180104
  Transmission Date: 20180509
  Serious: Yes (Hospitalization)
  Sender: FDA-Public Use
  Company Number: DE-SHIRE-2014BAX019665

PATIENT

DRUGS (4)
  1. FERRO-SANOL DUODENAL [Concomitant]
     Active Substance: FERROUS GLYCINE SULFATE
     Indication: ANAEMIA
     Dosage: 100MILLIGRAM1X A DAY
     Route: 048
     Dates: start: 20140207
  2. METAMIZOL NATRIUM [Concomitant]
     Indication: PAIN
     Dosage: 1.5MLAS NEEDED
     Route: 048
     Dates: start: 20140202, end: 20140307
  3. ADVATE [Suspect]
     Active Substance: ANTIHEMOPHILIC FACTOR, HUMAN RECOMBINANT
     Indication: PROPHYLAXIS
     Dosage: 2000IU (INTERNATIONAL UNIT)EVERY 2 DY
     Route: 065
     Dates: start: 20040802, end: 20140222
  4. ADVATE [Suspect]
     Active Substance: ANTIHEMOPHILIC FACTOR, HUMAN RECOMBINANT
     Indication: FACTOR VIII DEFICIENCY

REACTIONS (1)
  - Ileus [Recovered/Resolved]

NARRATIVE: CASE EVENT DATE: 20140224
